FAERS Safety Report 8883477 (Version 5)
Quarter: 2014Q1

REPORT INFORMATION
  Report Type: Spontaneous
  Country: US (occurrence: US)
  Receive Date: 20121102
  Receipt Date: 20140217
  Transmission Date: 20141002
  Serious: Yes (Hospitalization, Disabling, Other)
  Sender: FDA-Public Use
  Company Number: US-009507513-1210USA010302

PATIENT
  Sex: Female
  Weight: 43.54 kg

DRUGS (11)
  1. FOSAMAX [Suspect]
     Indication: OSTEOPOROSIS
     Dosage: 70 MG, QW
     Route: 048
     Dates: start: 20040611
  2. FOSAMAX PLUS D [Suspect]
     Indication: OSTEOPOROSIS
     Dosage: 70 MG, QW
     Route: 048
     Dates: start: 20070401, end: 200902
  3. LEVOTHROID [Concomitant]
     Indication: THYROID DISORDER
     Dosage: 50-100 MICROGRAM, QD
     Route: 048
  4. FOSAMAX [Suspect]
     Indication: OSTEOPOROSIS
     Dosage: UNK
     Route: 048
     Dates: start: 20090201, end: 20110315
  5. FOSAMAX [Suspect]
     Indication: OSTEOPENIA
  6. TUMS E-X [Concomitant]
     Indication: OSTEOPOROSIS
     Dosage: 750 MG, TID
  7. LEVOTHYROXINE SODIUM [Concomitant]
     Indication: THYROID DISORDER
  8. CYTOMEL [Concomitant]
     Indication: THYROID DISORDER
     Dosage: UNK
  9. VITAMIN D (UNSPECIFIED) [Concomitant]
     Indication: OSTEOPOROSIS
  10. CALCIUM (UNSPECIFIED) [Concomitant]
     Indication: OSTEOPOROSIS
  11. ALENDRONATE SODIUM [Suspect]
     Dosage: 70 MG, QW

REACTIONS (21)
  - Femur fracture [Recovering/Resolving]
  - Intramedullary rod insertion [Unknown]
  - Sinus tachycardia [Recovered/Resolved]
  - Haemorrhagic anaemia [Unknown]
  - Papillary thyroid cancer [Unknown]
  - Thyroidectomy [Unknown]
  - Thyroidectomy [Unknown]
  - Osteoarthritis [Unknown]
  - Transient ischaemic attack [Unknown]
  - Hypercholesterolaemia [Unknown]
  - Hypertriglyceridaemia [Unknown]
  - Glucose tolerance impaired [Unknown]
  - Large intestine polyp [Unknown]
  - Lipoma [Unknown]
  - Hyperkeratosis [Unknown]
  - Leukopenia [Unknown]
  - Fibrous histiocytoma [Unknown]
  - Anxiety disorder [Unknown]
  - Hypothyroidism [Unknown]
  - Gastrointestinal tract adenoma [Unknown]
  - Benign tumour excision [Unknown]
